FAERS Safety Report 9896581 (Version 1)
Quarter: 2014Q1

REPORT INFORMATION
  Report Type: Spontaneous
  Country: US (occurrence: US)
  Receive Date: 20140213
  Receipt Date: 20140213
  Transmission Date: 20141002
  Serious: Yes (Hospitalization)
  Sender: FDA-Public Use
  Company Number: US-BRISTOL-MYERS SQUIBB COMPANY-19124833

PATIENT
  Age: 61 Year
  Sex: Female
  Weight: 93.42 kg

DRUGS (6)
  1. ABATACEPT SUBQ INJECTION 125MG/ML [Suspect]
     Route: 058
  2. METHOTREXATE [Suspect]
     Dosage: TABS
  3. LISINOPRIL [Concomitant]
     Dosage: TABS
  4. SYNTHROID [Concomitant]
     Dosage: TABS
  5. FOLIC ACID [Concomitant]
     Dosage: TABS
  6. MULTIVITAMIN [Concomitant]
     Dosage: CAPS

REACTIONS (1)
  - Pneumonia legionella [Unknown]
